FAERS Safety Report 10987218 (Version 1)
Quarter: 2015Q1

REPORT INFORMATION
  Report Type: Spontaneous
  Country: US (occurrence: None)
  Receive Date: 20150316
  Receipt Date: 20150316
  Transmission Date: 20150721
  Serious: Yes (Other)
  Sender: FDA-Public Use
  Company Number: 416742

PATIENT
  Age: 8 Year
  Sex: Male
  Weight: 35.9 kg

DRUGS (1)
  1. NOVOSEVEN RT [Suspect]
     Active Substance: COAGULATION FACTOR VIIA RECOMBINANT HUMAN
     Indication: FACTOR VIII DEFICIENCY
     Dosage: 3 MG, SEVERAL TIMES PER DAY PROPHYLACTICALLY, INTRAVENOUS
     Route: 042
     Dates: end: 201402

REACTIONS (1)
  - No therapeutic response [None]

NARRATIVE: CASE EVENT DATE: 201402
